FAERS Safety Report 10382458 (Version 1)
Quarter: 2014Q3

REPORT INFORMATION
  Report Type: Spontaneous
  Country: GB (occurrence: GB)
  Receive Date: 20140813
  Receipt Date: 20140813
  Transmission Date: 20150326
  Serious: Yes (Other)
  Sender: FDA-Public Use
  Company Number: GB-B.I. PHARMACEUTICALS,INC./RIDGEFIELD-2014-BI-36137UK

PATIENT
  Age: 71 Year
  Sex: Female
  Weight: 51.2 kg

DRUGS (10)
  1. TIOTROPIUM [Suspect]
     Active Substance: TIOTROPIUM
     Indication: PRODUCT USED FOR UNKNOWN INDICATION
     Route: 065
     Dates: start: 20140416, end: 20140615
  2. OMEPRAZOLE. [Concomitant]
     Active Substance: OMEPRAZOLE
     Route: 065
     Dates: start: 20140417, end: 20140515
  3. PARACETAMOL [Concomitant]
     Active Substance: ACETAMINOPHEN
     Route: 065
     Dates: start: 20140428, end: 20140504
  4. TIOTROPIUM [Suspect]
     Active Substance: TIOTROPIUM
     Route: 065
     Dates: start: 20140627
  5. GLYCOPYRRONIUM [Concomitant]
     Active Substance: GLYCOPYRRONIUM
     Route: 065
     Dates: start: 20140724
  6. PREMARIN [Concomitant]
     Active Substance: ESTROGENS, CONJUGATED
     Route: 065
     Dates: start: 20140628
  7. CONJUGATED OESTROGENS EQUINE [Concomitant]
     Route: 065
     Dates: start: 20140520
  8. PREMARIN [Concomitant]
     Active Substance: ESTROGENS, CONJUGATED
     Route: 065
     Dates: start: 20140211, end: 20140506
  9. SALBUTAMOL [Concomitant]
     Active Substance: ALBUTEROL
     Route: 065
     Dates: start: 20140408, end: 20140614
  10. VOLUMATIC [Concomitant]
     Route: 065
     Dates: start: 20140211

REACTIONS (2)
  - Headache [Not Recovered/Not Resolved]
  - Cold sweat [Not Recovered/Not Resolved]

NARRATIVE: CASE EVENT DATE: 20140724
